FAERS Safety Report 6926999-7 (Version None)
Quarter: 2010Q3

REPORT INFORMATION
  Report Type: 
  Country: None (occurrence: None)
  Receive Date: 20100816
  Receipt Date: 20100720
  Transmission Date: 20110219
  Serious: No
  Sender: FDA-Public Use
  Company Number: US-ABBOTT-10P-163-0658734-00

PATIENT
  Sex: Female
  Weight: 69.916 kg

DRUGS (3)
  1. SIMCOR [Suspect]
     Indication: BLOOD CHOLESTEROL INCREASED
     Route: 048
     Dates: start: 20100715
  2. THYROID MEDICATION [Concomitant]
     Indication: THYROID DISORDER
     Route: 048
  3. MEDICATION FOR HEARTBURN [Concomitant]
     Indication: DYSPEPSIA
     Route: 048

REACTIONS (5)
  - COUGH [None]
  - HEADACHE [None]
  - NAUSEA [None]
  - OROPHARYNGEAL PAIN [None]
  - VOMITING [None]
